FAERS Safety Report 11142738 (Version 1)
Quarter: 2015Q2

REPORT INFORMATION
  Report Type: Spontaneous
  Country: VE (occurrence: VE)
  Receive Date: 20150527
  Receipt Date: 20150527
  Transmission Date: 20150821
  Serious: Yes (Death, Hospitalization, Other)
  Sender: FDA-Public Use
  Company Number: PHHY2015VE064032

PATIENT
  Sex: Male

DRUGS (1)
  1. SANDIMMUN NEORAL [Suspect]
     Active Substance: CYCLOSPORINE
     Indication: RENAL IMPAIRMENT
     Dosage: UNK
     Route: 048

REACTIONS (14)
  - Abasia [Unknown]
  - Cardiac disorder [Unknown]
  - Localised infection [Unknown]
  - Renal disorder [Unknown]
  - Blood pressure abnormal [Unknown]
  - Micturition disorder [Unknown]
  - Death [Fatal]
  - Colon cancer [Unknown]
  - Off label use [Unknown]
  - Malaise [Unknown]
  - Diet refusal [Unknown]
  - Hypokinesia [Unknown]
  - Peripheral swelling [Unknown]
  - Pancreatic carcinoma [Unknown]

NARRATIVE: CASE EVENT DATE: 20150424
